FAERS Safety Report 6191751-X (Version None)
Quarter: 2009Q2

REPORT INFORMATION
  Report Type: 
  Country: None (occurrence: None)
  Receive Date: 20090515
  Receipt Date: 20090506
  Transmission Date: 20091009
  Serious: Yes (Death, Hospitalization)
  Sender: FDA-Public Use
  Company Number: ZA-PFIZER INC-2009207660

PATIENT
  Age: 47 Year

DRUGS (7)
  1. BLINDED *PLACEBO [Suspect]
     Indication: COLORECTAL CANCER
     Dosage: 37.5 MG, 1X/DAY
     Route: 048
     Dates: start: 20080507, end: 20090407
  2. BLINDED SUNITINIB MALATE [Suspect]
     Indication: COLORECTAL CANCER
     Dosage: 37.5 MG, 1X/DAY
     Route: 048
     Dates: start: 20080507, end: 20090407
  3. IRINOTECAN HCL [Suspect]
     Indication: COLORECTAL CANCER
     Dosage: 327.6 MG, CYCLIC, EVERY 2 WEEKS
     Route: 042
     Dates: start: 20080507, end: 20090310
  4. FLUOROURACIL [Suspect]
     Indication: COLORECTAL CANCER
     Dosage: 728 MG, CYCLIC, EVERY 2 WEEKS
     Route: 040
     Dates: start: 20080507
  5. FLUOROURACIL [Suspect]
     Dosage: 4368 MG, CYCLIC, EVERY 2 WEEKS
     Route: 041
     Dates: start: 20080507, end: 20090310
  6. LEUCOVORIN CALCIUM [Suspect]
     Indication: COLORECTAL CANCER
     Dosage: 364 MG, CYCLIC, EVERY 2 WEEKS
     Route: 042
     Dates: start: 20080507, end: 20090310
  7. CLEXANE [Concomitant]
     Indication: AXILLARY VEIN THROMBOSIS
     Dosage: 80 MG, 2X/DAY
     Dates: start: 20081205, end: 20090424

REACTIONS (1)
  - ANAEMIA [None]
